FAERS Safety Report 8179265-9 (Version None)
Quarter: 2012Q1

REPORT INFORMATION
  Report Type: 
  Country: None (occurrence: None)
  Receive Date: 20120302
  Receipt Date: 20120220
  Transmission Date: 20120608
  Serious: Yes (Hospitalization)
  Sender: FDA-Public Use
  Company Number: GB-TEVA-324405ISR

PATIENT
  Age: 17 Year
  Sex: Female
  Weight: 60 kg

DRUGS (3)
  1. LEVEST 150/30 [Concomitant]
     Indication: PRODUCT USED FOR UNKNOWN INDICATION
     Dates: start: 20120124
  2. LEVONORGESTREL [Suspect]
     Indication: PRODUCT USED FOR UNKNOWN INDICATION
     Dates: start: 20120124, end: 20120124
  3. PL 32821/0002 FEMICEPT 150/30 [Concomitant]
     Indication: PRODUCT USED FOR UNKNOWN INDICATION
     Dates: start: 20120124

REACTIONS (1)
  - MIGRAINE [None]
